FAERS Safety Report 7259806-6 (Version None)
Quarter: 2011Q1

REPORT INFORMATION
  Report Type: 
  Country: None (occurrence: None)
  Receive Date: 20110130
  Receipt Date: 20100915
  Transmission Date: 20110831
  Serious: No
  Sender: FDA-Public Use
  Company Number: US-ABBOTT-10P-163-0671141-00

PATIENT
  Sex: Female
  Weight: 98.518 kg

DRUGS (2)
  1. MTX [Concomitant]
     Indication: PRODUCT USED FOR UNKNOWN INDICATION
  2. HUMIRA [Suspect]
     Indication: RHEUMATOID ARTHRITIS
     Route: 058
     Dates: end: 20100801

REACTIONS (2)
  - RHEUMATOID ARTHRITIS [None]
  - X-RAY ABNORMAL [None]
